FAERS Safety Report 9842115 (Version 2)
Quarter: 2014Q1

REPORT INFORMATION
  Report Type: Spontaneous
  Country: MY (occurrence: MY)
  Receive Date: 20140124
  Receipt Date: 20140324
  Transmission Date: 20141002
  Serious: Yes (Other)
  Sender: FDA-Public Use
  Company Number: MY-PFIZER INC-2014019289

PATIENT
  Age: 27 Year
  Sex: Female
  Weight: 52 kg

DRUGS (4)
  1. DILANTIN [Suspect]
     Dosage: 200 MG, 2X/DAY
     Route: 048
     Dates: start: 20120111, end: 20120112
  2. AMOXICILLIN [Suspect]
     Indication: ANTIBIOTIC THERAPY
     Dosage: 500 MG, 3X/DAY
     Route: 048
     Dates: start: 20120111, end: 20120112
  3. NEOMYCIN [Concomitant]
     Dosage: UNK
     Route: 061
     Dates: start: 20120111
  4. FOLIC ACID [Concomitant]
     Dosage: 1/1 OD
     Dates: start: 20120111

REACTIONS (2)
  - Skin swelling [Not Recovered/Not Resolved]
  - Pruritus [Not Recovered/Not Resolved]
